FAERS Safety Report 22933492 (Version 4)
Quarter: 2023Q4

REPORT INFORMATION
  Report Type: Report from Study
  Country: US (occurrence: US)
  Receive Date: 20230912
  Receipt Date: 20231219
  Transmission Date: 20240109
  Serious: Yes (Other)
  Sender: FDA-Public Use
  Company Number: US-ABBVIE-5321583

PATIENT
  Age: 72 Year
  Sex: Female
  Weight: 102.05 kg

DRUGS (2)
  1. HUMIRA [Suspect]
     Active Substance: ADALIMUMAB
     Indication: Psoriatic arthropathy
     Dosage: FORM STRENGTH: 40 MG, CITRATE FREE
     Route: 058
     Dates: start: 20220406
  2. HUMIRA [Suspect]
     Active Substance: ADALIMUMAB
     Dosage: FORM STRENGTH: 40 MG, CITRATE FREE
     Route: 058

REACTIONS (9)
  - Neovascular age-related macular degeneration [Unknown]
  - Psoriatic arthropathy [Not Recovered/Not Resolved]
  - Pruritus [Not Recovered/Not Resolved]
  - Retinal aneurysm [Recovering/Resolving]
  - Retinal vein occlusion [Recovered/Resolved]
  - Retinal aneurysm [Recovered/Resolved]
  - Vitreous haemorrhage [Unknown]
  - Abnormal sensation in eye [Unknown]
  - Pruritus [Recovered/Resolved]

NARRATIVE: CASE EVENT DATE: 20230701
